FAERS Safety Report 4780558-3 (Version None)
Quarter: 2005Q3

REPORT INFORMATION
  Report Type: 
  Country: None (occurrence: None)
  Receive Date: 20050926
  Receipt Date: 20050915
  Transmission Date: 20060218
  Serious: Yes (Hospitalization)
  Sender: FDA-Public Use
  Company Number: 2005PV002122

PATIENT
  Age: 53 Year
  Sex: Female
  Weight: 114.3065 kg

DRUGS (11)
  1. BYETTA [Suspect]
     Indication: DIABETES MELLITUS NON-INSULIN-DEPENDENT
     Dosage: 10 MCG; BID; SC
     Route: 058
     Dates: start: 20050701
  2. COREG [Concomitant]
  3. ALTACE [Concomitant]
  4. IMDUR [Concomitant]
  5. TRICOR [Concomitant]
  6. LASIX [Concomitant]
  7. CYMBALTA [Concomitant]
  8. ACTOS [Concomitant]
  9. AMBIEN [Concomitant]
  10. ACIPHEX [Concomitant]
  11. HYDROCODONE [Concomitant]

REACTIONS (2)
  - HERPES ZOSTER [None]
  - THERAPEUTIC RESPONSE UNEXPECTED [None]
